FAERS Safety Report 5441654-0 (Version None)
Quarter: 2007Q3

REPORT INFORMATION
  Report Type: 
  Country: None (occurrence: None)
  Receive Date: 20070904
  Receipt Date: 20070822
  Transmission Date: 20080115
  Serious: Yes (Hospitalization)
  Sender: FDA-Public Use
  Company Number: FR-BAYER-200710507BFR

PATIENT
  Age: 16 Year
  Sex: Female

DRUGS (13)
  1. CIFLOX [Suspect]
     Indication: UNEVALUABLE EVENT
     Dosage: TOTAL DAILY DOSE: 1200 MG  UNIT DOSE: 400 MG
     Route: 042
     Dates: start: 20070724, end: 20070731
  2. ZYVOX [Suspect]
     Indication: UNEVALUABLE EVENT
     Dosage: TOTAL DAILY DOSE: 1200 MG
     Route: 042
     Dates: start: 20070724, end: 20070731
  3. KEPPRA [Suspect]
     Indication: GRAND MAL CONVULSION
     Route: 042
     Dates: start: 20070723, end: 20070804
  4. TAZOCILLINE [Suspect]
     Indication: UNEVALUABLE EVENT
     Dosage: TOTAL DAILY DOSE: 12 G
     Route: 042
     Dates: start: 20070725, end: 20070801
  5. TRIFLUCAN [Suspect]
     Indication: UNEVALUABLE EVENT
     Dosage: AS USED: 400 MG
     Route: 042
     Dates: start: 20070726, end: 20070729
  6. HYPNOVEL [Concomitant]
     Indication: SEDATION
  7. FENTANYL [Concomitant]
     Indication: SEDATION
  8. THIOPENTAL SODIUM [Concomitant]
     Indication: UNEVALUABLE EVENT
  9. CLONAZEPAM [Concomitant]
     Indication: GRAND MAL CONVULSION
     Dates: start: 20070716
  10. AUGMENTIN '125' [Concomitant]
     Indication: UNEVALUABLE EVENT
     Dates: start: 20070707, end: 20070712
  11. ORBENIN CAP [Concomitant]
     Indication: UNEVALUABLE EVENT
     Dates: start: 20070718, end: 20070719
  12. GENTAMICIN [Concomitant]
     Indication: UNEVALUABLE EVENT
     Dates: start: 20070719, end: 20070722
  13. TIENAM [Concomitant]
     Indication: UNEVALUABLE EVENT
     Dates: start: 20070724, end: 20070724

REACTIONS (4)
  - FACE OEDEMA [None]
  - HYPERSENSITIVITY [None]
  - LEUKOPENIA [None]
  - RASH ERYTHEMATOUS [None]
